FAERS Safety Report 8552004-5 (Version None)
Quarter: 2012Q3

REPORT INFORMATION
  Report Type: 
  Country: None (occurrence: None)
  Receive Date: 20120730
  Receipt Date: 20120718
  Transmission Date: 20120928
  Serious: Yes (Other)
  Sender: FDA-Public Use
  Company Number: NL-ELI_LILLY_AND_COMPANY-NL201207005554

PATIENT
  Sex: Male

DRUGS (1)
  1. BYDUREON [Suspect]
     Dosage: 2 MG, UNKNOWN
     Dates: start: 20120401, end: 20120601

REACTIONS (3)
  - WEIGHT DECREASED [None]
  - FAECES HARD [None]
  - URTICARIA [None]
